FAERS Safety Report 17097727 (Version 1)
Quarter: 2019Q4

REPORT INFORMATION
  Report Type: Spontaneous
  Country: US (occurrence: US)
  Receive Date: 20191105
  Receipt Date: 20191105
  Transmission Date: 20200122
  Serious: Yes (Life-Threatening, Hospitalization)
  Sender: FDA-Public Use
  Company Number: None

PATIENT
  Age: 86 Year
  Sex: Male
  Weight: 60.33 kg

DRUGS (1)
  1. CELECOXIB. [Suspect]
     Active Substance: CELECOXIB
     Indication: GROIN PAIN
     Dates: start: 20190917

REACTIONS (3)
  - Somnambulism [None]
  - Road traffic accident [None]
  - Somnolence [None]

NARRATIVE: CASE EVENT DATE: 20190917
